FAERS Safety Report 9613041 (Version 1)
Quarter: 2013Q4

REPORT INFORMATION
  Report Type: Report from Study
  Country: US (occurrence: US)
  Receive Date: 20131010
  Receipt Date: 20131010
  Transmission Date: 20140711
  Serious: Yes (Other)
  Sender: FDA-Public Use
  Company Number: US-ASTRAZENECA-2013SE73606

PATIENT
  Age: 52 Year
  Sex: Female
  Weight: 91.6 kg

DRUGS (7)
  1. SEROQUEL XR [Suspect]
     Indication: BIPOLAR DISORDER
     Route: 048
     Dates: start: 2012
  2. SEROQUEL XR [Suspect]
     Indication: SCHIZOPHRENIA
     Route: 048
     Dates: start: 2012
  3. BUDEPRION SR [Suspect]
     Indication: DEPRESSION
     Route: 048
     Dates: start: 2012
  4. BUDEPRION SR [Suspect]
     Indication: BIPOLAR DISORDER
     Route: 048
     Dates: start: 2012
  5. RISPERIDONE [Suspect]
     Indication: DEPRESSION
     Route: 065
     Dates: start: 2012
  6. RISPERIDONE [Suspect]
     Indication: BIPOLAR DISORDER
     Route: 065
     Dates: start: 2012
  7. MOTRIN [Concomitant]
     Indication: FIBROMYALGIA
     Dosage: 400MG OR 800MG PRN
     Route: 048

REACTIONS (13)
  - Suicidal ideation [Recovered/Resolved]
  - Weight increased [Not Recovered/Not Resolved]
  - Anxiety [Recovering/Resolving]
  - Mood altered [Not Recovered/Not Resolved]
  - Sexual dysfunction [Not Recovered/Not Resolved]
  - Adverse event [Not Recovered/Not Resolved]
  - Malaise [Recovered/Resolved]
  - Feeling abnormal [Recovered/Resolved]
  - Urinary tract infection [Recovered/Resolved]
  - Nervousness [Recovering/Resolving]
  - Blood urine present [Recovered/Resolved]
  - Drug dispensing error [Unknown]
  - Drug dose omission [Recovered/Resolved]
